FAERS Safety Report 10550301 (Version 3)
Quarter: 2015Q1

REPORT INFORMATION
  Report Type: Report from Study
  Country: ES (occurrence: ES)
  Receive Date: 20141029
  Receipt Date: 20150327
  Transmission Date: 20150720
  Serious: Yes (Death, Other)
  Sender: FDA-Public Use
  Company Number: ES-ROCHE-707692

PATIENT

DRUGS (4)
  1. CAPECITABINE. [Suspect]
     Active Substance: CAPECITABINE
     Indication: NEOPLASM
     Route: 048
  2. NERATINIB [Suspect]
     Active Substance: NERATINIB
     Indication: HER-2 POSITIVE BREAST CANCER
  3. NERATINIB [Suspect]
     Active Substance: NERATINIB
     Indication: NEOPLASM
     Route: 048
  4. CAPECITABINE. [Suspect]
     Active Substance: CAPECITABINE
     Indication: HER-2 POSITIVE BREAST CANCER

REACTIONS (18)
  - Anaemia [Unknown]
  - Hypoglycaemia [Unknown]
  - Alanine aminotransferase increased [Unknown]
  - Nausea [Unknown]
  - Diarrhoea [Unknown]
  - Palmar-plantar erythrodysaesthesia syndrome [Unknown]
  - Vomiting [Unknown]
  - Activated partial thromboplastin time prolonged [Unknown]
  - Dehydration [Unknown]
  - Disease progression [Fatal]
  - Fatigue [Unknown]
  - General physical health deterioration [Unknown]
  - Small intestinal obstruction [Unknown]
  - Aspartate aminotransferase increased [Unknown]
  - Ascites [Unknown]
  - Asthenia [Unknown]
  - Decreased appetite [Unknown]
  - Abdominal pain [Unknown]
